FAERS Safety Report 25096373 (Version 1)
Quarter: 2025Q1

REPORT INFORMATION
  Report Type: Spontaneous
  Country: CN (occurrence: CN)
  Receive Date: 20250319
  Receipt Date: 20250319
  Transmission Date: 20250408
  Serious: Yes (Hospitalization)
  Sender: NOVARTIS
  Company Number: CN-002147023-NVSC2025CN043491

PATIENT
  Age: 54 Year
  Sex: Female
  Weight: 68 kg

DRUGS (1)
  1. COSENTYX [Suspect]
     Active Substance: SECUKINUMAB
     Indication: Ankylosing spondylitis
     Dosage: 300.000 MG, QMO
     Route: 058
     Dates: start: 20240513, end: 20241225

REACTIONS (8)
  - Eczema [Recovering/Resolving]
  - Skin ulcer [Recovering/Resolving]
  - Erythema [Unknown]
  - Papule [Unknown]
  - Hyperkeratosis [Unknown]
  - Skin fissures [Unknown]
  - Dry skin [Unknown]
  - Skin weeping [Recovering/Resolving]

NARRATIVE: CASE EVENT DATE: 20241021
